FAERS Safety Report 9271873 (Version 4)
Quarter: 2013Q3

REPORT INFORMATION
  Report Type: Spontaneous
  Country: US (occurrence: US)
  Receive Date: 20130506
  Receipt Date: 20130905
  Transmission Date: 20140515
  Serious: No
  Sender: FDA-Public Use
  Company Number: US-PFIZER INC-2013132620

PATIENT
  Age: 78 Year
  Sex: Male
  Weight: 78.46 kg

DRUGS (22)
  1. SUTENT [Suspect]
     Dosage: 50 MG, CYCLIC
     Dates: start: 20130425
  2. XARELTO [Concomitant]
     Dosage: UNK
  3. CALCIUM [Concomitant]
     Dosage: 850 MG, UNK
  4. CALCIUM [Concomitant]
     Dosage: UNK
  5. ZOFRAN [Concomitant]
     Dosage: UNK
  6. MEGACE [Concomitant]
     Dosage: UNK
  7. DIGOXIN [Concomitant]
     Dosage: UNK
  8. MIRALAX [Concomitant]
     Dosage: UNK
  9. OXYCONTIN [Concomitant]
     Dosage: 20 MG, 2X/DAY
  10. OXYCODONE [Concomitant]
     Dosage: 5 MG, AS NEEDED
  11. ARTHRITIS PAIN RELIEF [Concomitant]
     Dosage: 650 MG, UNK
  12. CO-Q-10 [Concomitant]
     Dosage: 200 MG, UNK
  13. CRESTOR [Concomitant]
     Dosage: UNK
  14. METOPROLOL [Concomitant]
     Dosage: UNK
  15. TRICOR [Concomitant]
     Dosage: UNK
  16. ZETIA [Concomitant]
     Dosage: UNK
  17. ZOLOFT [Concomitant]
     Dosage: UNK
  18. FLEXERIL [Concomitant]
     Dosage: 10 MG, AS NEEDED
  19. VITAMIN D [Concomitant]
     Dosage: 400 MG, UNK
  20. PHENERGAN [Concomitant]
     Dosage: UNK
  21. LASIX [Concomitant]
     Dosage: UNK
  22. CVS ARTHRITIS [Concomitant]
     Dosage: 650 MG, UNK

REACTIONS (11)
  - Decreased appetite [Unknown]
  - Epistaxis [Unknown]
  - Nausea [Not Recovered/Not Resolved]
  - Weight bearing difficulty [Unknown]
  - Limb discomfort [Unknown]
  - Decubitus ulcer [Not Recovered/Not Resolved]
  - Fatigue [Unknown]
  - Dry mouth [Unknown]
  - Oral pain [Unknown]
  - Disease progression [Unknown]
  - Neoplasm malignant [Unknown]
